FAERS Safety Report 6174315-3 (Version None)
Quarter: 2009Q2

REPORT INFORMATION
  Report Type: 
  Country: None (occurrence: None)
  Receive Date: 20090430
  Receipt Date: 20080513
  Transmission Date: 20091009
  Serious: No
  Sender: FDA-Public Use
  Company Number: US-ASTRAZENECA-2008UW09859

PATIENT
  Age: 71 Year
  Sex: Female
  Weight: 74.4 kg

DRUGS (7)
  1. NEXIUM [Suspect]
     Indication: GASTROOESOPHAGEAL REFLUX DISEASE
     Route: 048
  2. LORAZEPAM [Concomitant]
  3. PRAVASTATIN [Concomitant]
  4. NEURONTIN [Concomitant]
  5. HYDROCHLOROTHIAZIDE [Concomitant]
  6. EYE DROPS [Concomitant]
  7. AMITRIPTLINE HYDROCHLORIDE TAB [Concomitant]

REACTIONS (3)
  - CONSTIPATION [None]
  - GASTROOESOPHAGEAL REFLUX DISEASE [None]
  - NAUSEA [None]
